FAERS Safety Report 5417718-4 (Version None)
Quarter: 2007Q3

REPORT INFORMATION
  Report Type: 
  Country: None (occurrence: None)
  Receive Date: 20070815
  Receipt Date: 20070815
  Transmission Date: 20080115
  Serious: Yes (Hospitalization)
  Sender: FDA-Public Use
  Company Number: None

PATIENT
  Sex: Male
  Weight: 58.9676 kg

DRUGS (10)
  1. SINEMET [Suspect]
     Indication: PARKINSON'S DISEASE
     Dosage: 25/100 ONE PO QID  PRIOR TO ADMISSION
     Route: 048
  2. WELLBUTRIN XL [Suspect]
     Indication: DEPRESSION
     Dosage: 150MG PO QD  PRIOR TO ADMISSION
     Route: 048
  3. ZOLOFT [Suspect]
     Indication: DEPRESSION
     Dosage: 100MG PO QD PRIOR TO ADMISSION
     Route: 048
  4. FOLIC ACID [Concomitant]
  5. FLORINEF [Concomitant]
  6. ACCUPRIL [Concomitant]
  7. ATIVAN [Concomitant]
  8. CLONAZEPAM [Concomitant]
  9. VYTORIN [Concomitant]
  10. LACTULOSE [Concomitant]

REACTIONS (2)
  - LOSS OF CONSCIOUSNESS [None]
  - SYNCOPE [None]
